FAERS Safety Report 7624203-8 (Version None)
Quarter: 2011Q3

REPORT INFORMATION
  Report Type: 
  Country: None (occurrence: None)
  Receive Date: 20110720
  Receipt Date: 20110720
  Transmission Date: 20111222
  Serious: Yes (Other)
  Sender: FDA-Public Use
  Company Number: None

PATIENT
  Sex: Male
  Weight: 1078.6 kg

DRUGS (2)
  1. CRESTOR [Suspect]
     Indication: HYPERLIPIDAEMIA
     Dates: start: 20110111, end: 20110301
  2. VYTORIN [Concomitant]
     Indication: HYPERLIPIDAEMIA
     Dates: start: 20110311, end: 20110412

REACTIONS (6)
  - TENDERNESS [None]
  - LIPOMA [None]
  - MYALGIA [None]
  - ERYTHEMA [None]
  - OEDEMA PERIPHERAL [None]
  - BLOOD CREATININE INCREASED [None]
